FAERS Safety Report 10534508 (Version 1)
Quarter: 2014Q4

REPORT INFORMATION
  Report Type: Spontaneous
  Country: US (occurrence: None)
  Receive Date: 20141021
  Receipt Date: 20141021
  Transmission Date: 20150529
  Serious: Yes (Hospitalization)
  Sender: FDA-Public Use
  Company Number: None

PATIENT
  Age: 7 Month
  Sex: Male
  Weight: 9.1 kg

DRUGS (3)
  1. POLY VI SOL [Concomitant]
  2. CALCIUM CARBONATE. [Concomitant]
     Active Substance: CALCIUM CARBONATE
  3. ERGOCALCIFEROL. [Suspect]
     Active Substance: ERGOCALCIFEROL
     Indication: RICKETS
     Dosage: 100,000 UNITS  EVERY 2 HOURS X6  ORAL
     Route: 048
     Dates: start: 20130213, end: 20130214

REACTIONS (3)
  - Nephropathy toxic [None]
  - Overdose [None]
  - Acute kidney injury [None]

NARRATIVE: CASE EVENT DATE: 20130214
